FAERS Safety Report 10195462 (Version 2)
Quarter: 2014Q2

REPORT INFORMATION
  Report Type: Spontaneous
  Country: US (occurrence: US)
  Receive Date: 20140526
  Receipt Date: 20140604
  Transmission Date: 20141212
  Serious: No
  Sender: FDA-Public Use
  Company Number: US-009507513-1405USA004272

PATIENT
  Age: 65 Year
  Sex: Female

DRUGS (6)
  1. OXYTROL FOR WOMEN [Suspect]
     Indication: HYPERTONIC BLADDER
     Dosage: 3 PATCHES FOR APPROX 10 DAYS
     Route: 062
     Dates: start: 20140408, end: 20140418
  2. LIPITOR [Concomitant]
  3. METOPROLOL [Concomitant]
  4. VITAMIN D (UNSPECIFIED) [Concomitant]
  5. CALCIUM (UNSPECIFIED) [Concomitant]
  6. VITAMINS (UNSPECIFIED) [Concomitant]

REACTIONS (1)
  - Drug ineffective [Unknown]
